FAERS Safety Report 19242635 (Version 1)
Quarter: 2021Q2

REPORT INFORMATION
  Report Type: Spontaneous
  Country: GB (occurrence: GB)
  Receive Date: 20210511
  Receipt Date: 20210511
  Transmission Date: 20210717
  Serious: Yes (Other)
  Sender: FDA-Public Use
  Company Number: GB-MYLANLABS-2021M1027328

PATIENT
  Age: 48 Year
  Sex: Female
  Weight: 68.03 kg

DRUGS (1)
  1. CLARITHROMYCIN. [Suspect]
     Active Substance: CLARITHROMYCIN
     Indication: SINUSITIS
     Dosage: 500MG
     Route: 048
     Dates: start: 20210430, end: 20210505

REACTIONS (6)
  - Depression [Recovering/Resolving]
  - Hyperhidrosis [Recovering/Resolving]
  - Insomnia [Recovering/Resolving]
  - Anxiety [Recovering/Resolving]
  - Nightmare [Recovering/Resolving]
  - Hallucination [Recovering/Resolving]

NARRATIVE: CASE EVENT DATE: 20210501
